FAERS Safety Report 6980760-6 (Version None)
Quarter: 2010Q3

REPORT INFORMATION
  Report Type: 
  Country: None (occurrence: None)
  Receive Date: 20100910
  Receipt Date: 20100910
  Transmission Date: 20110219
  Serious: Yes (Life-Threatening, Hospitalization, Disabling, Other)
  Sender: FDA-Public Use
  Company Number: None

PATIENT
  Sex: Female
  Weight: 58.9676 kg

DRUGS (1)
  1. ACTOS [Suspect]
     Indication: BLOOD GLUCOSE DECREASED
     Dosage: 2 TIMES A DAY 3-5 YEARS

REACTIONS (3)
  - ARTERIAL DISORDER [None]
  - CARDIAC FAILURE [None]
  - MULTIPLE FRACTURES [None]
